FAERS Safety Report 16531778 (Version 1)
Quarter: 2019Q3

REPORT INFORMATION
  Report Type: Spontaneous
  Country: US (occurrence: US)
  Receive Date: 20190705
  Receipt Date: 20190705
  Transmission Date: 20191004
  Serious: Yes (Other)
  Sender: FDA-Public Use
  Company Number: US-BAYER-2019-123347

PATIENT
  Age: 7 Decade

DRUGS (2)
  1. ELIQUIS [Interacting]
     Active Substance: APIXABAN
     Dosage: UNK
     Dates: start: 20190617
  2. BAYER ASPIRIN [Suspect]
     Active Substance: ASPIRIN
     Indication: PAIN
     Dosage: UNK
     Dates: start: 201906

REACTIONS (4)
  - Deep vein thrombosis postoperative [Unknown]
  - Anaemia [Unknown]
  - Labelled drug-drug interaction medication error [None]
  - Haematoma [Recovering/Resolving]

NARRATIVE: CASE EVENT DATE: 201906
